FAERS Safety Report 6573307-X (Version None)
Quarter: 2010Q1

REPORT INFORMATION
  Report Type: 
  Country: None (occurrence: None)
  Receive Date: 20100208
  Receipt Date: 20100128
  Transmission Date: 20100710
  Serious: Yes (Hospitalization)
  Sender: FDA-Public Use
  Company Number: FR-PFIZER INC-2009156964

PATIENT
  Age: 72 Year
  Sex: Male

DRUGS (7)
  1. SUNITINIB MALATE [Suspect]
     Indication: NEUROENDOCRINE CARCINOMA
     Dosage: 37.5 MG, 1X/DAY
     Route: 048
     Dates: start: 20081124
  2. ESOMEPRAZOLE MAGNESIUM [Concomitant]
     Dosage: UNK
     Route: 048
  3. NICARDIPINE [Concomitant]
     Dosage: UNK
     Route: 048
  4. INSULIN GLARGINE [Concomitant]
     Dosage: UNK
     Route: 058
  5. INHALED HUMAN INSULIN [Concomitant]
     Dosage: UNK
     Route: 058
  6. TERBUTALINE SULFATE [Concomitant]
     Dosage: UNK
  7. BUDESONIDE [Concomitant]
     Dosage: UNK

REACTIONS (1)
  - RESPIRATORY FAILURE [None]
